FAERS Safety Report 13740289 (Version 1)
Quarter: 2017Q3

REPORT INFORMATION
  Report Type: Spontaneous
  Country: US (occurrence: US)
  Receive Date: 20170711
  Receipt Date: 20170711
  Transmission Date: 20171127
  Serious: No
  Sender: FDA-Public Use
  Company Number: US-ALKERMES INC.-ALK-2017-002058

PATIENT
  Age: 25 Year
  Sex: Male

DRUGS (1)
  1. ARISTADA [Suspect]
     Active Substance: ARIPIPRAZOLE LAUROXIL
     Indication: SCHIZOPHRENIA
     Dosage: 882 MG, QMO
     Route: 030
     Dates: start: 20170413

REACTIONS (3)
  - Frustration tolerance decreased [Not Recovered/Not Resolved]
  - Agitation [Not Recovered/Not Resolved]
  - Impatience [Not Recovered/Not Resolved]

NARRATIVE: CASE EVENT DATE: 2017
